FAERS Safety Report 15557306 (Version 1)
Quarter: 2018Q4

REPORT INFORMATION
  Report Type: Report from Study
  Country: US (occurrence: US)
  Receive Date: 20181026
  Receipt Date: 20181026
  Transmission Date: 20190205
  Serious: Yes (Hospitalization)
  Sender: FDA-Public Use
  Company Number: US-BIOGEN-2018BI00642888

PATIENT
  Sex: Male

DRUGS (1)
  1. TECFIDERA [Suspect]
     Active Substance: DIMETHYL FUMARATE
     Indication: MULTIPLE SCLEROSIS
     Dosage: MAINTENANCE DOSE
     Route: 048
     Dates: start: 20140820, end: 20180105

REACTIONS (6)
  - Helicobacter infection [Recovered/Resolved]
  - White blood cell count decreased [Recovered/Resolved]
  - Colitis [Recovered/Resolved]
  - Influenza [Recovered/Resolved]
  - Oesophagitis [Not Recovered/Not Resolved]
  - Laboratory test abnormal [Recovered/Resolved]
